FAERS Safety Report 10446408 (Version 2)
Quarter: 2014Q3

REPORT INFORMATION
  Report Type: Spontaneous
  Country: GB (occurrence: GB)
  Receive Date: 20140911
  Receipt Date: 20140930
  Transmission Date: 20150326
  Serious: Yes (Hospitalization, Other)
  Sender: FDA-Public Use
  Company Number: GB-AUROBINDO-AUR-APL-2014-09557

PATIENT
  Age: 71 Year
  Sex: Male

DRUGS (5)
  1. CLOPIDOGREL [Concomitant]
     Active Substance: CLOPIDOGREL BISULFATE
     Indication: PRODUCT USED FOR UNKNOWN INDICATION
     Dosage: UNK
     Route: 065
  2. LOSARTAN [Suspect]
     Active Substance: LOSARTAN
     Indication: HYPERTENSION
     Dosage: UNK, ONCE A DAY
     Route: 065
     Dates: start: 201308, end: 201403
  3. RAMIPRIL TABLET (RAMIPRIL) TABLET, UNKNOWN [Suspect]
     Active Substance: RAMIPRIL
     Indication: HYPERTENSION
     Dosage: 1 DF, TWO TIMES A DAY
     Route: 065
     Dates: start: 201405
  4. RAMIPRIL TABLET (RAMIPRIL) TABLET, UNKNOWN [Suspect]
     Active Substance: RAMIPRIL
     Dosage: 1 DF, ONCE A DAY
     Route: 065
  5. TILDIEM RETARD [Suspect]
     Active Substance: DILTIAZEM HYDROCHLORIDE
     Indication: HYPERTENSION
     Dosage: UNK
     Route: 065
     Dates: start: 201403, end: 201405

REACTIONS (8)
  - Adverse event [Recovered/Resolved]
  - Chest discomfort [Not Recovered/Not Resolved]
  - Heart rate decreased [Recovered/Resolved]
  - Dyspnoea [Not Recovered/Not Resolved]
  - Decreased activity [Not Recovered/Not Resolved]
  - Secretion discharge [Not Recovered/Not Resolved]
  - Fatigue [Not Recovered/Not Resolved]
  - Blood pressure abnormal [Not Recovered/Not Resolved]
